FAERS Safety Report 19926898 (Version 1)
Quarter: 2021Q4

REPORT INFORMATION
  Report Type: Spontaneous
  Country: US (occurrence: US)
  Receive Date: 20211007
  Receipt Date: 20211007
  Transmission Date: 20220303
  Serious: No
  Sender: FDA-Public Use
  Company Number: US-INDIVIOR US-INDV-127110-2020

PATIENT
  Sex: Female

DRUGS (4)
  1. SUBOXONE [Suspect]
     Active Substance: BUPRENORPHINE HYDROCHLORIDE\NALOXONE HYDROCHLORIDE
     Indication: Pain
     Dosage: 8 MILLIGRAM, (ONE EVERY 8 HOURS)
     Route: 060
     Dates: start: 20201029, end: 20201029
  2. PERCOCET [Concomitant]
     Active Substance: ACETAMINOPHEN\OXYCODONE HYDROCHLORIDE
     Indication: Back injury
     Dosage: 10MG ,(TOO MUCH FOR HER)
     Route: 065
  3. PERCOCET [Concomitant]
     Active Substance: ACETAMINOPHEN\OXYCODONE HYDROCHLORIDE
     Indication: Ulcer
     Dosage: UNK, (TOOK LOWEST DOSE)
     Route: 065
  4. PERCOCET [Concomitant]
     Active Substance: ACETAMINOPHEN\OXYCODONE HYDROCHLORIDE
     Dosage: UNK (HALF OR 5MG OR  ONE THIRD OF A 10-325)
     Route: 065
     Dates: start: 20201021

REACTIONS (9)
  - Off label use [Recovered/Resolved]
  - Thirst [Unknown]
  - Motion sickness [Not Recovered/Not Resolved]
  - Blood pressure systolic increased [Unknown]
  - Body temperature decreased [Unknown]
  - Inappropriate schedule of product administration [Recovered/Resolved]
  - Hyperhidrosis [Unknown]
  - Panic reaction [Not Recovered/Not Resolved]
  - Vomiting [Recovered/Resolved]

NARRATIVE: CASE EVENT DATE: 20200101
